FAERS Safety Report 14375655 (Version 1)
Quarter: 2018Q1

REPORT INFORMATION
  Report Type: Spontaneous
  Country: US (occurrence: US)
  Receive Date: 20180110
  Receipt Date: 20180110
  Transmission Date: 20180509
  Serious: Yes (Disabling, Other)
  Sender: FDA-Public Use
  Company Number: None

PATIENT
  Sex: Female
  Weight: 22.5 kg

DRUGS (2)
  1. AMOXICILLIN. [Concomitant]
     Active Substance: AMOXICILLIN
  2. TAMIFLU [Suspect]
     Active Substance: OSELTAMIVIR PHOSPHATE
     Indication: INFLUENZA
     Dosage: ?          QUANTITY:10 ML;?
     Route: 048
     Dates: start: 20171231, end: 20180106

REACTIONS (5)
  - Eye swelling [None]
  - Swelling face [None]
  - Rash erythematous [None]
  - Lip swelling [None]
  - Therapy cessation [None]

NARRATIVE: CASE EVENT DATE: 20180106
